FAERS Safety Report 6407289-8 (Version None)
Quarter: 2009Q4

REPORT INFORMATION
  Report Type: 
  Country: None (occurrence: None)
  Receive Date: 20091020
  Receipt Date: 20091015
  Transmission Date: 20100525
  Serious: Yes (Other)
  Sender: FDA-Public Use
  Company Number: A0811995A

PATIENT
  Age: 34 Year
  Sex: Female

DRUGS (6)
  1. LAMICTAL [Suspect]
     Dosage: 200MG PER DAY
     Route: 048
     Dates: start: 20050101
  2. PAXIL [Concomitant]
  3. SEROQUEL [Concomitant]
  4. NEURONTIN [Concomitant]
  5. INVEGA [Concomitant]
  6. CLONAZEPAM [Concomitant]

REACTIONS (2)
  - CONVULSION [None]
  - TONGUE BITING [None]
